FAERS Safety Report 14627939 (Version 3)
Quarter: 2018Q2

REPORT INFORMATION
  Report Type: Report from Study
  Country: US (occurrence: US)
  Receive Date: 20180312
  Receipt Date: 20180510
  Transmission Date: 20180711
  Serious: Yes (Hospitalization)
  Sender: FDA-Public Use
  Company Number: US-ACTELION-A-US2018-167895

PATIENT
  Age: 66 Year
  Sex: Female
  Weight: 89.8 kg

DRUGS (4)
  1. UPTRAVI [Suspect]
     Active Substance: SELEXIPAG
     Dosage: 1000 MCG, BID
     Route: 048
  2. UPTRAVI [Suspect]
     Active Substance: SELEXIPAG
     Indication: PULMONARY ARTERIAL HYPERTENSION
     Dosage: 400 MCG, BID
     Route: 048
     Dates: end: 2018
  3. WARFARIN [Concomitant]
     Active Substance: WARFARIN
  4. UPTRAVI [Suspect]
     Active Substance: SELEXIPAG
     Dosage: 800 MCG, BID
     Route: 048

REACTIONS (13)
  - Dyspnoea [Unknown]
  - Gastrointestinal disorder [Unknown]
  - Nausea [Unknown]
  - Rash [Unknown]
  - Flatulence [Unknown]
  - Cardiac disorder [Unknown]
  - Chest pain [Unknown]
  - Abdominal distension [Unknown]
  - Oedema [Unknown]
  - Cardiac failure congestive [Unknown]
  - Renal impairment [Unknown]
  - Diarrhoea [Unknown]
  - Insomnia [Unknown]
